FAERS Safety Report 8996263 (Version 1)
Quarter: 2013Q1

REPORT INFORMATION
  Report Type: Spontaneous
  Country: US (occurrence: US)
  Receive Date: 20130103
  Receipt Date: 20130103
  Transmission Date: 20140127
  Serious: Yes (Other)
  Sender: FDA-Public Use
  Company Number: PHEH2012US024196

PATIENT
  Sex: Male

DRUGS (2)
  1. GLEEVEC [Suspect]
     Indication: NEOPLASM MALIGNANT
     Dosage: UNK, QD
     Route: 048
     Dates: start: 20120720
  2. EXJADE [Suspect]
     Dosage: UNK
     Dates: end: 20121005

REACTIONS (1)
  - Leukaemia [Unknown]
